FAERS Safety Report 7943055-X (Version None)
Quarter: 2011Q4

REPORT INFORMATION
  Report Type: 
  Country: None (occurrence: None)
  Receive Date: 20111128
  Receipt Date: 20111117
  Transmission Date: 20120403
  Serious: Yes (Death, Hospitalization)
  Sender: FDA-Public Use
  Company Number: CA-BAXTER-2011BH027773

PATIENT
  Age: 62 Year
  Sex: Male

DRUGS (5)
  1. EXTRANEAL [Suspect]
     Route: 033
  2. EXTRANEAL [Suspect]
     Route: 033
  3. EXTRANEAL [Suspect]
     Route: 033
  4. DIANEAL [Suspect]
     Indication: PERITONEAL DIALYSIS
     Route: 033
  5. EXTRANEAL [Suspect]
     Indication: PERITONEAL DIALYSIS
     Route: 033

REACTIONS (2)
  - INFECTIOUS PERITONITIS [None]
  - PRODUCT CONTAINER ISSUE [None]
